FAERS Safety Report 16028533 (Version 2)
Quarter: 2019Q1

REPORT INFORMATION
  Report Type: Spontaneous
  Country: US (occurrence: US)
  Receive Date: 20190304
  Receipt Date: 20190308
  Transmission Date: 20190418
  Serious: Yes (Other)
  Sender: FDA-Public Use
  Company Number: US-ASTRAZENECA-2019SE33811

PATIENT
  Age: 84 Year
  Sex: Male

DRUGS (2)
  1. HCTZ [Suspect]
     Active Substance: HYDROCHLOROTHIAZIDE
     Route: 065
  2. ROSUVASTATIN. [Suspect]
     Active Substance: ROSUVASTATIN
     Route: 048

REACTIONS (9)
  - Dizziness [Unknown]
  - Dyspnoea [Unknown]
  - Exercise tolerance decreased [Unknown]
  - Fatigue [Unknown]
  - Heart rate irregular [Unknown]
  - Nocturia [Unknown]
  - Productive cough [Unknown]
  - Syncope [Unknown]
  - Asthenia [Unknown]
